FAERS Safety Report 12336455 (Version 1)
Quarter: 2016Q2

REPORT INFORMATION
  Report Type: Spontaneous
  Country: US (occurrence: None)
  Receive Date: 20160504
  Receipt Date: 20160504
  Transmission Date: 20160815
  Serious: No
  Sender: FDA-Public Use
  Company Number: None

PATIENT
  Sex: Female

DRUGS (5)
  1. FLAGYL [Suspect]
     Active Substance: METRONIDAZOLE\METRONIDAZOLE HYDROCHLORIDE
  2. FLUCONAZOLE. [Suspect]
     Active Substance: FLUCONAZOLE
  3. VANCOMYCIN [Suspect]
     Active Substance: VANCOMYCIN
  4. ROCEPHIN [Suspect]
     Active Substance: CEFTRIAXONE SODIUM
  5. FIDAXOMICIN [Suspect]
     Active Substance: FIDAXOMICIN

REACTIONS (1)
  - Diarrhoea [None]
